FAERS Safety Report 8473668-0 (Version None)
Quarter: 2012Q2

REPORT INFORMATION
  Report Type: 
  Country: None (occurrence: None)
  Receive Date: 20120628
  Receipt Date: 20110817
  Transmission Date: 20120825
  Serious: Yes (Death)
  Sender: FDA-Public Use
  Company Number: US-MYLANLABS-2011S1017223

PATIENT
  Age: 49 Year
  Sex: Female

DRUGS (11)
  1. RISPERDAL [Concomitant]
  2. CLOZAPINE [Suspect]
     Route: 048
  3. CLOZAPINE [Suspect]
     Route: 048
  4. PRILOSEC [Concomitant]
  5. SYNTHROID [Concomitant]
  6. DEPAKOTE [Concomitant]
  7. LORAZEPAM [Concomitant]
  8. BENZTROPINE MESYLATE [Concomitant]
  9. LEVETIRACETAM [Concomitant]
  10. CLOZAPINE [Suspect]
     Route: 048
  11. CLOZAPINE [Suspect]
     Route: 048

REACTIONS (1)
  - DEATH [None]
